FAERS Safety Report 20874817 (Version 2)
Quarter: 2022Q2

REPORT INFORMATION
  Report Type: Spontaneous
  Country: FR (occurrence: FR)
  Receive Date: 20220526
  Receipt Date: 20220610
  Transmission Date: 20220721
  Serious: Yes (Hospitalization, Other)
  Sender: FDA-Public Use
  Company Number: FR-AFSSAPS-GR20221158

PATIENT
  Age: 60 Year
  Sex: Male
  Weight: 99 kg

DRUGS (13)
  1. BROMAZEPAM [Suspect]
     Active Substance: BROMAZEPAM
     Indication: Intentional overdose
     Dosage: UNK (NP 6 MG)
     Route: 048
     Dates: start: 20220321, end: 20220321
  2. BROMAZEPAM [Suspect]
     Active Substance: BROMAZEPAM
     Dosage: 6 MILLIGRAM (NP) (1/2-1/2-1/2)
     Route: 065
  3. BROMAZEPAM [Suspect]
     Active Substance: BROMAZEPAM
     Dosage: 6 MILLIGRAM (NP) (1/2-1/2-1/2)
     Route: 048
     Dates: start: 20220321, end: 20220321
  4. PAROXETINE [Suspect]
     Active Substance: PAROXETINE
     Indication: Intentional overdose
     Dosage: UNK (NP 20 MG)
     Route: 048
     Dates: start: 20220321, end: 20220321
  5. PAROXETINE [Suspect]
     Active Substance: PAROXETINE
     Dosage: 20 MILLIGRAM, (3-0-00)
     Route: 065
  6. CYAMEMAZINE [Suspect]
     Active Substance: CYAMEMAZINE
     Indication: Intentional overdose
     Dosage: UNK (NP 25 MG)
     Route: 048
     Dates: start: 20220321, end: 20220321
  7. CYAMEMAZINE [Suspect]
     Active Substance: CYAMEMAZINE
     Indication: Insomnia
     Dosage: 25 MILLIGRAM (NP) (0-0-3 AND 1 MORE CP IF INSOMNIA)
     Route: 065
  8. CYAMEMAZINE [Suspect]
     Active Substance: CYAMEMAZINE
     Dosage: 25 MILLIGRAM (NP) (0-0-3 AND 1 MORE CP IF INSOMNIA)
     Route: 048
     Dates: start: 20220321, end: 20220321
  9. LORMETAZEPAM [Concomitant]
     Active Substance: LORMETAZEPAM
     Indication: Product used for unknown indication
     Dosage: 2 MILLIGRAM, ONCE A DAY
     Route: 065
  10. ALBUTEROL [Concomitant]
     Active Substance: ALBUTEROL
     Indication: Product used for unknown indication
     Dosage: UNK, ONCE A DAY (BID 1-0-1)
     Route: 065
  11. PULMICORT TURBUHALER [Concomitant]
     Active Substance: BUDESONIDE
     Indication: Product used for unknown indication
     Dosage: UNK, ONCE A DAY (BID 1-0-1)
     Route: 065
  12. MORPHINE SULFATE [Concomitant]
     Active Substance: MORPHINE SULFATE
     Indication: Pain
     Dosage: UNK
     Route: 065
  13. CARBOHYDRATES NOS;CREATINE;MINERALS NOS;VITAMINS NOS [Concomitant]
     Indication: Product used for unknown indication
     Dosage: 8 DROP, ONCE A DAY (2 GTT, QID EYES)
     Route: 065

REACTIONS (3)
  - Poisoning deliberate [Recovered/Resolved]
  - Coma [Recovered/Resolved]
  - Toxicity to various agents [Recovered/Resolved]

NARRATIVE: CASE EVENT DATE: 20220321
